FAERS Safety Report 10607449 (Version 4)
Quarter: 2015Q1

REPORT INFORMATION
  Report Type: Spontaneous
  Country: US (occurrence: US)
  Receive Date: 20141125
  Receipt Date: 20150318
  Transmission Date: 20150720
  Serious: No
  Sender: FDA-Public Use
  Company Number: US-SHIRE-US201407643

PATIENT
  Sex: Male

DRUGS (1)
  1. VPRIV [Suspect]
     Active Substance: VELAGLUCERASE ALFA
     Indication: PRODUCT USED FOR UNKNOWN INDICATION
     Dosage: UNK, 1X/2WKS (TWO WEEK INTERVALS)
     Route: 041
     Dates: start: 2012

REACTIONS (6)
  - Drug ineffective [Not Recovered/Not Resolved]
  - Angiotensin converting enzyme decreased [Unknown]
  - Drug specific antibody present [Unknown]
  - Infusion related reaction [Recovered/Resolved]
  - Abdominal pain lower [Recovered/Resolved]
  - Hypertension [Not Recovered/Not Resolved]

NARRATIVE: CASE EVENT DATE: 2013
